FAERS Safety Report 20911142 (Version 1)
Quarter: 2022Q2

REPORT INFORMATION
  Report Type: Spontaneous
  Country: KR (occurrence: KR)
  Receive Date: 20220603
  Receipt Date: 20220603
  Transmission Date: 20220721
  Serious: Yes (Other)
  Sender: FDA-Public Use
  Company Number: KR-009507513-2206KOR000003

PATIENT
  Sex: Female

DRUGS (1)
  1. JANUVIA [Suspect]
     Active Substance: SITAGLIPTIN PHOSPHATE
     Dosage: UNK
     Route: 048

REACTIONS (5)
  - Eye haemorrhage [Unknown]
  - Hypoglycaemia [Unknown]
  - Weight increased [Unknown]
  - Somnolence [Unknown]
  - Product use issue [Unknown]
